FAERS Safety Report 4566816-6 (Version None)
Quarter: 2005Q1

REPORT INFORMATION
  Report Type: 
  Country: None (occurrence: None)
  Receive Date: 20050201
  Receipt Date: 20020418
  Transmission Date: 20050727
  Serious: Yes (Other)
  Sender: FDA-Public Use
  Company Number: US-BRISTOL-MYERS SQUIBB COMPANY-11832474

PATIENT
  Age: 36 Year
  Sex: Female

DRUGS (11)
  1. STADOL [Suspect]
     Route: 045
     Dates: start: 19980424, end: 20010701
  2. BUTALBITAL + CAFFEINE + ACETAMINOPHEN [Concomitant]
  3. METOCLOPRAMIDE [Concomitant]
  4. LORAZEPAM [Concomitant]
  5. DEPAKOTE [Concomitant]
  6. PROMETHAZINE [Concomitant]
  7. HYDROCODONE + ACETAMINOPHEN [Concomitant]
  8. NEURONTIN [Concomitant]
  9. ACETAMINOPHEN AND CODEINE PHOSPHATE [Concomitant]
  10. HYDROXYZINE [Concomitant]
  11. ULTRAM [Concomitant]

REACTIONS (1)
  - DEPENDENCE [None]
